FAERS Safety Report 9188429 (Version 1)
Quarter: 2013Q1

REPORT INFORMATION
  Report Type: Spontaneous
  Country: US (occurrence: US)
  Receive Date: 20130325
  Receipt Date: 20130325
  Transmission Date: 20140127
  Serious: No
  Sender: FDA-Public Use
  Company Number: US-MYLANLABS-2013S1004148

PATIENT
  Age: 83 Year
  Sex: Female
  Weight: 68.95 kg

DRUGS (9)
  1. NIFEDIPINE EXTENDED RELEASE [Suspect]
     Route: 048
  2. NEXIUM [Suspect]
     Route: 048
  3. SIMVASTATIN [Suspect]
     Route: 048
  4. PROPRANOLOL [Concomitant]
  5. LISINOPRIL [Concomitant]
  6. GABAPENTIN [Concomitant]
     Indication: NERVOUSNESS
  7. NOVOLOG [Concomitant]
     Indication: DIABETES MELLITUS
  8. LANTUS [Concomitant]
     Indication: DIABETES MELLITUS
  9. MAGNESIUM [Concomitant]

REACTIONS (4)
  - Nausea [Recovering/Resolving]
  - Dizziness [Recovering/Resolving]
  - Decreased appetite [Recovering/Resolving]
  - Asthenia [Recovering/Resolving]
